FAERS Safety Report 10210628 (Version 1)
Quarter: 2014Q2

REPORT INFORMATION
  Report Type: Spontaneous
  Country: US (occurrence: None)
  Receive Date: 20140528
  Receipt Date: 20140528
  Transmission Date: 20141212
  Serious: Yes (Hospitalization)
  Sender: FDA-Public Use
  Company Number: IPC201405-000243

PATIENT
  Age: 23 Year
  Sex: Female

DRUGS (3)
  1. TRAMADOL [Suspect]
  2. METAXALONE [Suspect]
  3. NAPROXEN [Suspect]

REACTIONS (5)
  - Serotonin syndrome [None]
  - Drug interaction [None]
  - Intentional overdose [None]
  - Suicide attempt [None]
  - Unresponsive to stimuli [None]
